FAERS Safety Report 24427395 (Version 1)
Quarter: 2024Q4

REPORT INFORMATION
  Report Type: Spontaneous
  Country: US (occurrence: US)
  Receive Date: 20241011
  Receipt Date: 20241011
  Transmission Date: 20250114
  Serious: No
  Sender: SANOFI AVENTIS
  Company Number: US-SA-2024SA257943

PATIENT
  Age: 63 Year
  Sex: Female

DRUGS (25)
  1. DUPIXENT [Suspect]
     Active Substance: DUPILUMAB
     Indication: Asthma
     Dosage: 600MG 1X
     Route: 058
     Dates: start: 20240618, end: 20240618
  2. DUPIXENT [Suspect]
     Active Substance: DUPILUMAB
     Dosage: 300MG QOW
     Route: 058
  3. THEOPHYLLINE [Concomitant]
     Active Substance: THEOPHYLLINE
  4. BETAMETHASONE DIPROPIONATE [Concomitant]
     Active Substance: BETAMETHASONE DIPROPIONATE
  5. VITAMINS [Concomitant]
     Active Substance: VITAMINS
  6. MONTELUKAST [Concomitant]
     Active Substance: MONTELUKAST
  7. ATENOLOL [Concomitant]
     Active Substance: ATENOLOL
  8. PREDNISONE [Concomitant]
     Active Substance: PREDNISONE
  9. TRIAMCINOLONE [Concomitant]
     Active Substance: TRIAMCINOLONE
  10. VITAMIN B12 [Concomitant]
     Active Substance: CYANOCOBALAMIN
  11. CLINDAMYCIN HYDROCHLORIDE [Concomitant]
     Active Substance: CLINDAMYCIN HYDROCHLORIDE
  12. XOLAIR [Concomitant]
     Active Substance: OMALIZUMAB
  13. CLOBETASOL [Concomitant]
     Active Substance: CLOBETASOL
  14. BREO ELLIPTA [Concomitant]
     Active Substance: FLUTICASONE FUROATE\VILANTEROL TRIFENATATE
  15. TRELEGY ELLIPTA [Concomitant]
     Active Substance: FLUTICASONE FUROATE\UMECLIDINIUM BROMIDE\VILANTEROL TRIFENATATE
  16. CLARITIN [Concomitant]
     Active Substance: LORATADINE
  17. PREDNISONE [Concomitant]
     Active Substance: PREDNISONE
  18. NASONEX [Concomitant]
     Active Substance: MOMETASONE FUROATE
  19. EUTHYROX [Concomitant]
     Active Substance: LEVOTHYROXINE SODIUM
  20. TIZANIDINE [Concomitant]
     Active Substance: TIZANIDINE
  21. ERYTHROMYCIN [Concomitant]
     Active Substance: ERYTHROMYCIN
  22. SYNTHROID [Concomitant]
     Active Substance: LEVOTHYROXINE SODIUM
  23. SINGULAIR [Concomitant]
     Active Substance: MONTELUKAST SODIUM
  24. ALBUTEROL [Concomitant]
     Active Substance: ALBUTEROL
  25. ADRENAL [Concomitant]
     Active Substance: EPINEPHRINE

REACTIONS (3)
  - Asthma [Unknown]
  - Impaired quality of life [Unknown]
  - Eye irritation [Unknown]

NARRATIVE: CASE EVENT DATE: 20240101
